FAERS Safety Report 8947643 (Version 6)
Quarter: 2013Q4

REPORT INFORMATION
  Report Type: Spontaneous
  Country: US (occurrence: US)
  Receive Date: 20121205
  Receipt Date: 20131105
  Transmission Date: 20140711
  Serious: Yes (Hospitalization, Other)
  Sender: FDA-Public Use
  Company Number: US-009507513-1211USA012929

PATIENT
  Sex: Female
  Weight: 61.68 kg

DRUGS (14)
  1. FOSAMAX [Suspect]
     Indication: OSTEOPOROSIS
     Dosage: 10 MG, QD
     Route: 048
     Dates: start: 19951219, end: 201112
  2. FOSAMAX [Suspect]
     Dosage: 70 MG, QW
     Route: 048
     Dates: start: 20010101, end: 20111231
  3. ALENDRONATE SODIUM [Suspect]
     Indication: OSTEOPOROSIS
     Dosage: 70 MG, UNK
     Route: 048
  4. GLUCOTROL [Concomitant]
     Indication: TYPE 2 DIABETES MELLITUS
  5. CALCIUM (UNSPECIFIED) [Concomitant]
  6. INFLUENZA VIRUS VACCINE (UNSPECIFIED) [Concomitant]
     Dosage: UNK
     Dates: start: 20110907, end: 20110907
  7. INSULIN, ISOPHANE [Concomitant]
     Indication: INSULIN-REQUIRING TYPE 2 DIABETES MELLITUS
     Dosage: 4 UNITS, UNK
  8. HUMULIN REGULAR [Concomitant]
     Indication: INSULIN-REQUIRING TYPE 2 DIABETES MELLITUS
     Dosage: 4 UNITS, UNK
  9. HUMALOG [Concomitant]
     Indication: INSULIN-REQUIRING TYPE 2 DIABETES MELLITUS
     Dosage: 8 UNITS, UNK
  10. LANTUS [Concomitant]
     Indication: INSULIN-REQUIRING TYPE 2 DIABETES MELLITUS
  11. CALCIUM (UNSPECIFIED) (+) CHOLECALCIFEROL [Concomitant]
     Dosage: UNK
     Dates: start: 1980
  12. ASCORBIC ACID [Concomitant]
     Dosage: UNK
     Dates: start: 1980
  13. MINERALS (UNSPECIFIED) (+) VITAMINS (UNSPECIFIED) [Concomitant]
     Dosage: UNK
     Dates: start: 1980
  14. INSULIN [Concomitant]
     Dosage: UNK
     Dates: start: 1996

REACTIONS (23)
  - Femur fracture [Recovered/Resolved]
  - Intramedullary rod insertion [Unknown]
  - Femur fracture [Recovered/Resolved]
  - Intramedullary rod insertion [Unknown]
  - Diabetes mellitus inadequate control [Unknown]
  - Low turnover osteopathy [Unknown]
  - Endodontic procedure [Unknown]
  - Hypertension [Unknown]
  - Synovial cyst [Unknown]
  - Anxiety [Unknown]
  - Anticoagulation drug level below therapeutic [Unknown]
  - Haemorrhagic anaemia [Unknown]
  - Vitamin D deficiency [Unknown]
  - Aortic stenosis [Unknown]
  - Hyponatraemia [Unknown]
  - Cystitis [Unknown]
  - Road traffic accident [Unknown]
  - Osteoarthritis [Unknown]
  - Road traffic accident [Unknown]
  - Blood glucose decreased [Unknown]
  - Weight increased [Unknown]
  - Local swelling [Unknown]
  - Pain in extremity [Unknown]
